FAERS Safety Report 9827815 (Version 1)
Quarter: 2013Q4

REPORT INFORMATION
  Report Type: Spontaneous
  Country: US (occurrence: None)
  Receive Date: 20131120
  Receipt Date: 20131120
  Transmission Date: 20140711
  Serious: Yes (Other)
  Sender: FDA-Public Use
  Company Number: DEP_01028_2013

PATIENT
  Age: 75 Year
  Sex: Female
  Weight: 83.92 kg

DRUGS (6)
  1. GRALISE [Suspect]
     Indication: NEUROPATHY PERIPHERAL
     Route: 048
     Dates: start: 201307
  2. GRALISE [Suspect]
     Indication: OFF LABEL USE
     Route: 048
     Dates: start: 201307
  3. AMLODIPINE (UNKNOWN) [Concomitant]
  4. K-DUR (UNKNOWN) [Concomitant]
  5. LOSARTAN/HYDROCHLOROTHIAZIDE) (UNKNOWN) [Concomitant]
  6. XALATAN (UNKNOWN) [Concomitant]

REACTIONS (1)
  - Confusional state [None]
